FAERS Safety Report 18942135 (Version 1)
Quarter: 2021Q1

REPORT INFORMATION
  Report Type: Other
  Country: FR (occurrence: FR)
  Receive Date: 20210226
  Receipt Date: 20210226
  Transmission Date: 20210420
  Serious: Yes (Death, Hospitalization, Other)
  Sender: FDA-Public Use
  Company Number: FR-WES PHARMA INC-2107352

PATIENT
  Age: 37 Year
  Sex: Male

DRUGS (1)
  1. OXYCODONE HYDROCHLORIDE. [Suspect]
     Active Substance: OXYCODONE HYDROCHLORIDE
     Indication: PRODUCT USED FOR UNKNOWN INDICATION
     Route: 048

REACTIONS (14)
  - Hepatocellular injury [Recovering/Resolving]
  - Renal failure [Recovering/Resolving]
  - Metabolic acidosis [Unknown]
  - Disseminated intravascular coagulation [Unknown]
  - Hyperthermia [Recovered/Resolved]
  - Toxic leukoencephalopathy [Fatal]
  - Overdose [Fatal]
  - Coma [Unknown]
  - Seizure [Unknown]
  - Toxicity to various agents [Fatal]
  - Loss of consciousness [Unknown]
  - Brain injury [Fatal]
  - Hyperkalaemia [Unknown]
  - Rhabdomyolysis [Unknown]
